FAERS Safety Report 19690241 (Version 2)
Quarter: 2021Q3

REPORT INFORMATION
  Report Type: Spontaneous
  Country: US (occurrence: US)
  Receive Date: 20210812
  Receipt Date: 20210817
  Transmission Date: 20211014
  Serious: Yes (Other)
  Sender: FDA-Public Use
  Company Number: US-B.I. PHARMACEUTICALS,INC./RIDGEFIELD-2021-BI-120983

PATIENT
  Age: 69 Year
  Sex: Female

DRUGS (2)
  1. ALBUTEROL [SALBUTAMOL] [Concomitant]
     Active Substance: ALBUTEROL
     Indication: PRODUCT USED FOR UNKNOWN INDICATION
  2. SPIRIVA [Suspect]
     Active Substance: TIOTROPIUM BROMIDE MONOHYDRATE
     Indication: CHRONIC OBSTRUCTIVE PULMONARY DISEASE
     Route: 055
     Dates: start: 1986

REACTIONS (8)
  - Dyspnoea [Unknown]
  - Pulmonary mass [Unknown]
  - Cough [Unknown]
  - Pancreatitis [Unknown]
  - Tachycardia [Unknown]
  - Dyspnoea [Not Recovered/Not Resolved]
  - Myocardial infarction [Unknown]
  - Pancreatic calcification [Unknown]

NARRATIVE: CASE EVENT DATE: 2018
